FAERS Safety Report 4831658-0 (Version None)
Quarter: 2005Q4

REPORT INFORMATION
  Report Type: 
  Country: None (occurrence: None)
  Receive Date: 20051116
  Receipt Date: 20051107
  Transmission Date: 20060501
  Serious: Yes (Hospitalization, Other)
  Sender: FDA-Public Use
  Company Number: 2005138375

PATIENT
  Sex: Female

DRUGS (1)
  1. AROMASIN [Suspect]
     Indication: BREAST CANCER

REACTIONS (5)
  - DEAFNESS [None]
  - ERYSIPELAS [None]
  - FEELING DRUNK [None]
  - MENTAL DISORDER [None]
  - OTOTOXICITY [None]
